FAERS Safety Report 4715460-6 (Version None)
Quarter: 2005Q3

REPORT INFORMATION
  Report Type: 
  Country: None (occurrence: None)
  Receive Date: 20050715
  Receipt Date: 20050715
  Transmission Date: 20060218
  Serious: No
  Sender: FDA-Public Use
  Company Number: None

PATIENT
  Sex: Female
  Weight: 77.1115 kg

DRUGS (2)
  1. CIPRO [Suspect]
     Indication: ANTHRAX
     Dosage: ONE PO BID
     Route: 048
     Dates: start: 20050629
  2. CIPRO [Suspect]
     Indication: PROPHYLAXIS
     Dosage: ONE PO BID
     Route: 048
     Dates: start: 20050629

REACTIONS (4)
  - ERYTHEMA [None]
  - FLUSHING [None]
  - NAUSEA [None]
  - TREMOR [None]
